FAERS Safety Report 9467401 (Version 1)
Quarter: 2013Q3

REPORT INFORMATION
  Report Type: Spontaneous
  Country: US (occurrence: None)
  Receive Date: 20130819
  Receipt Date: 20130819
  Transmission Date: 20140515
  Serious: Yes (Life-Threatening)
  Sender: FDA-Public Use
  Company Number: None

PATIENT
  Age: 34 Year
  Sex: Male
  Weight: 89.5 kg

DRUGS (3)
  1. PEG-ASPARAGINASE [Suspect]
     Indication: ACUTE LYMPHOCYTIC LEUKAEMIA
     Dosage: 5,273  --  INTRAVENOUS
     Route: 042
     Dates: start: 20121126, end: 20121126
  2. RED BLOOD CELLS [Concomitant]
  3. VINCRISTINE [Concomitant]

REACTIONS (5)
  - Chest discomfort [None]
  - Nausea [None]
  - Vomiting [None]
  - Urinary incontinence [None]
  - Blood pressure decreased [None]
